FAERS Safety Report 4314815-1 (Version None)
Quarter: 2004Q1

REPORT INFORMATION
  Report Type: 
  Country: None (occurrence: None)
  Receive Date: 20040310
  Receipt Date: 20040302
  Transmission Date: 20041129
  Serious: Yes (Other)
  Sender: FDA-Public Use
  Company Number: PHBS2004BE03015

PATIENT
  Age: 84 Year
  Sex: Female

DRUGS (6)
  1. DIOVAN [Suspect]
     Indication: HYPERTENSION
     Dosage: 160 MG/DAY
     Route: 048
     Dates: start: 20000101, end: 20040201
  2. ALDACTONE [Concomitant]
     Dosage: 25 MG, UNK
  3. GLUCOPHAGE [Concomitant]
  4. BURINEX [Concomitant]
  5. NITROGLYCERIN [Concomitant]
  6. MOLSIDOMINE [Concomitant]

REACTIONS (8)
  - BALANCE DISORDER [None]
  - BLOOD CREATININE INCREASED [None]
  - BLOOD POTASSIUM INCREASED [None]
  - BLOOD UREA INCREASED [None]
  - FALL [None]
  - MUSCULAR WEAKNESS [None]
  - PARALYSIS [None]
  - RENAL IMPAIRMENT [None]
